FAERS Safety Report 9046218 (Version 10)
Quarter: 2013Q4

REPORT INFORMATION
  Report Type: Report from Study
  Country: CA (occurrence: CA)
  Receive Date: 20130201
  Receipt Date: 20131107
  Transmission Date: 20140711
  Serious: Yes (Death, Hospitalization, Other)
  Sender: FDA-Public Use
  Company Number: PHHY2012CA101753

PATIENT
  Age: 68 Year
  Sex: Female

DRUGS (5)
  1. SANDOSTATIN LAR [Suspect]
     Indication: NEUROENDOCRINE TUMOUR
     Dosage: 30 MG, EVERY 4 WEEKS
     Route: 030
     Dates: start: 20121004, end: 20131010
  2. LEVOFLOXACIN [Concomitant]
     Indication: PNEUMONIA
     Dosage: UNK UKN, UNK
     Dates: start: 201101
  3. VENTOLINE [Concomitant]
     Indication: PNEUMONIA
     Dosage: UNK UKN, UNK
     Dates: start: 201101
  4. LOSARTAN [Concomitant]
     Dosage: UNK UKN, UNK
     Dates: end: 20121123
  5. CHEMOTHERAPEUTICS [Concomitant]
     Dosage: UNK UKN, UNK

REACTIONS (22)
  - Death [Fatal]
  - Fall [Unknown]
  - Contusion [Unknown]
  - Lung infection [Unknown]
  - Fluid retention [Unknown]
  - Terminal state [Unknown]
  - Atelectasis [Unknown]
  - Pulmonary mass [Unknown]
  - Dyspnoea [Unknown]
  - Heart rate increased [Unknown]
  - Anxiety [Unknown]
  - Platelet count decreased [Unknown]
  - Red blood cell count decreased [Unknown]
  - Oedema peripheral [Unknown]
  - Blood pressure increased [Unknown]
  - Fluid imbalance [Unknown]
  - Ascites [Unknown]
  - Weight decreased [Unknown]
  - Back pain [Unknown]
  - Decreased appetite [Unknown]
  - Dizziness [Unknown]
  - Asthenia [Unknown]
